FAERS Safety Report 8872265 (Version 1)
Quarter: 2012Q4

REPORT INFORMATION
  Report Type: 
  Country: US (occurrence: US)
  Receive Date: 20121029
  Receipt Date: 20121029
  Transmission Date: 20130627
  Serious: Yes (Other)
  Sender: FDA-Public Use
  Company Number: US-AMGEN-USASP2012067941

PATIENT
  Age: 41 Year
  Sex: Female

DRUGS (1)
  1. ENBREL [Suspect]
     Indication: SYSTEMIC LUPUS ERYTHEMATOSUS
     Dosage: 50 mg, qwk
     Dates: start: 20120415, end: 20121007

REACTIONS (2)
  - Abdominal pain lower [Not Recovered/Not Resolved]
  - Abdominal discomfort [Not Recovered/Not Resolved]
